FAERS Safety Report 21202003 (Version 1)
Quarter: 2022Q3

REPORT INFORMATION
  Report Type: Report from Study
  Country: US (occurrence: US)
  Receive Date: 20220811
  Receipt Date: 20220811
  Transmission Date: 20221027
  Serious: Yes (Other)
  Sender: FDA-Public Use
  Company Number: US-ABBVIE-22K-163-4496734-00

PATIENT
  Age: 22 Year
  Sex: Female

DRUGS (1)
  1. HUMIRA [Suspect]
     Active Substance: ADALIMUMAB
     Indication: Crohn^s disease
     Dosage: CF
     Route: 058

REACTIONS (10)
  - Loss of consciousness [Unknown]
  - Loss of consciousness [Recovered/Resolved]
  - Dizziness postural [Unknown]
  - Joint swelling [Recovering/Resolving]
  - Joint injury [Unknown]
  - Faeces hard [Unknown]
  - Contusion [Recovering/Resolving]
  - Blood iron decreased [Unknown]
  - Crohn^s disease [Not Recovered/Not Resolved]
  - Dehydration [Unknown]

NARRATIVE: CASE EVENT DATE: 20220720
